FAERS Safety Report 6253837-0 (Version None)
Quarter: 2009Q2

REPORT INFORMATION
  Report Type: 
  Country: None (occurrence: None)
  Receive Date: 20090630
  Receipt Date: 20090630
  Transmission Date: 20091009
  Serious: No
  Sender: FDA-Public Use
  Company Number: None

PATIENT
  Age: 30 Year
  Sex: Male
  Weight: 130 kg

DRUGS (1)
  1. QUELICIN [Suspect]
     Indication: GENERAL ANAESTHESIA
     Dosage: 120 MG X1 IV
     Route: 042
     Dates: start: 20090618

REACTIONS (1)
  - DRUG EFFECT DECREASED [None]
